FAERS Safety Report 6388655-6 (Version None)
Quarter: 2009Q4

REPORT INFORMATION
  Report Type: 
  Country: None (occurrence: None)
  Receive Date: 20091005
  Receipt Date: 20090928
  Transmission Date: 20100525
  Serious: Yes (Death, Other)
  Sender: FDA-Public Use
  Company Number: US-CUBIST-2009S1000404

PATIENT
  Age: 6 Year
  Sex: Male
  Weight: 22.7 kg

DRUGS (17)
  1. CUBICIN [Suspect]
     Indication: ENTEROCOCCAL BACTERAEMIA
     Route: 042
     Dates: start: 20090828, end: 20090905
  2. CUBICIN [Suspect]
     Route: 042
     Dates: start: 20090828, end: 20090905
  3. AMPHOTERICIN B [Concomitant]
     Indication: DRUG USE FOR UNKNOWN INDICATION
  4. CEFEPIME [Concomitant]
     Indication: DRUG USE FOR UNKNOWN INDICATION
  5. CHLOROTHIAZIDE [Concomitant]
     Indication: DRUG USE FOR UNKNOWN INDICATION
  6. DOBUTAMINE HCL [Concomitant]
     Indication: DRUG USE FOR UNKNOWN INDICATION
  7. DOPAMINE HCL [Concomitant]
     Indication: DRUG USE FOR UNKNOWN INDICATION
  8. FLAGYL [Concomitant]
     Indication: DRUG USE FOR UNKNOWN INDICATION
  9. GENTAMICIN [Concomitant]
     Indication: DRUG USE FOR UNKNOWN INDICATION
  10. POTASSIUM CHLORIDE [Concomitant]
     Indication: DRUG USE FOR UNKNOWN INDICATION
  11. FUROSEMIDE [Concomitant]
  12. MEROPENEM [Concomitant]
     Indication: DRUG USE FOR UNKNOWN INDICATION
  13. MILRINONE [Concomitant]
     Indication: DRUG USE FOR UNKNOWN INDICATION
  14. SYNTHROID [Concomitant]
     Indication: DRUG USE FOR UNKNOWN INDICATION
  15. CYTARABINE [Concomitant]
     Indication: ACUTE MYELOID LEUKAEMIA
  16. IDARUBICIN HCL [Suspect]
     Indication: ACUTE MYELOID LEUKAEMIA
  17. VELCADE [Suspect]
     Indication: ACUTE MYELOID LEUKAEMIA

REACTIONS (4)
  - COR PULMONALE [None]
  - LEFT VENTRICULAR DYSFUNCTION [None]
  - MYOCARDITIS [None]
  - RIGHT VENTRICULAR DYSFUNCTION [None]
